FAERS Safety Report 19205285 (Version 1)
Quarter: 2021Q2

REPORT INFORMATION
  Report Type: Spontaneous
  Country: US (occurrence: US)
  Receive Date: 20210502
  Receipt Date: 20210502
  Transmission Date: 20210717
  Serious: Yes (Other)
  Sender: FDA-Public Use
  Company Number: None

PATIENT
  Age: 5 Year
  Sex: Female
  Weight: 18.63 kg

DRUGS (6)
  1. VITAMIN C [Concomitant]
     Active Substance: ASCORBIC ACID
  2. IUICE PLUS+ FRUITS  AND VEGETABLES [Concomitant]
  3. FIBER GUMMIES [Concomitant]
     Active Substance: DIETARY SUPPLEMENT
  4. MIRALAX [Suspect]
     Active Substance: POLYETHYLENE GLYCOL 3350
     Indication: CONSTIPATION
     Dosage: ?          QUANTITY:17 CAPFUL;?
     Route: 048
     Dates: start: 20210416, end: 20210429
  5. ZINC. [Concomitant]
     Active Substance: ZINC
  6. SMARTYPANTS MULTIVITAMIN [Concomitant]

REACTIONS (6)
  - Pain [None]
  - Anxiety [None]
  - Depressed mood [None]
  - Illness anxiety disorder [None]
  - Mental disorder [None]
  - Paranoia [None]

NARRATIVE: CASE EVENT DATE: 20210417
